FAERS Safety Report 10638370 (Version 1)
Quarter: 2014Q4

REPORT INFORMATION
  Report Type: Spontaneous
  Country: US (occurrence: None)
  Receive Date: 20141203
  Receipt Date: 20141203
  Transmission Date: 20150529
  Serious: Yes (Hospitalization)
  Sender: FDA-Public Use
  Company Number: US-000019N

PATIENT
  Age: 24 Month
  Sex: Male

DRUGS (4)
  1. DEXAMETHASONE. [Concomitant]
     Active Substance: DEXAMETHASONE
  2. METHOTREXATE [Concomitant]
     Active Substance: METHOTREXATE
  3. VINCRISTINE [Concomitant]
     Active Substance: VINCRISTINE
  4. MERCAPTOPURINE. [Suspect]
     Active Substance: MERCAPTOPURINE
     Route: 048
     Dates: start: 20140821

REACTIONS (2)
  - Febrile neutropenia [None]
  - Neutrophil count decreased [None]

NARRATIVE: CASE EVENT DATE: 20141115
